FAERS Safety Report 6163384-2 (Version None)
Quarter: 2009Q2

REPORT INFORMATION
  Report Type: 
  Country: None (occurrence: None)
  Receive Date: 20090422
  Receipt Date: 20080627
  Transmission Date: 20091009
  Serious: Yes (Life-Threatening, Hospitalization)
  Sender: FDA-Public Use
  Company Number: JP-ASTRAZENECA-2008SE03191

PATIENT
  Sex: Male
  Weight: 2 kg

DRUGS (1)
  1. BLOPRESS TABLETS 2 [Suspect]
     Indication: PREGNANCY INDUCED HYPERTENSION
     Route: 064
     Dates: start: 20050601, end: 20050701

REACTIONS (6)
  - FAILURE TO THRIVE [None]
  - FOETAL DISTRESS SYNDROME [None]
  - NEONATAL HYPOTENSION [None]
  - NEPHROGENIC DIABETES INSIPIDUS [None]
  - RENAL FAILURE NEONATAL [None]
  - RESPIRATORY FAILURE [None]
